FAERS Safety Report 18379480 (Version 1)
Quarter: 2020Q4

REPORT INFORMATION
  Report Type: Spontaneous
  Country: CN (occurrence: CN)
  Receive Date: 20201014
  Receipt Date: 20201014
  Transmission Date: 20210114
  Serious: Yes (Death, Life-Threatening, Other)
  Sender: FDA-Public Use
  Company Number: CN-LUPIN PHARMACEUTICALS INC.-2020-07390

PATIENT
  Weight: 1.61 kg

DRUGS (2)
  1. METRONIDAZOLE. [Suspect]
     Active Substance: METRONIDAZOLE
     Indication: LISTERIOSIS
     Dosage: UNK
     Route: 064
  2. AMOXICILLIN. [Suspect]
     Active Substance: AMOXICILLIN
     Indication: LISTERIOSIS
     Dosage: UNK
     Route: 064

REACTIONS (16)
  - Foetal distress syndrome [Unknown]
  - Hypoglycaemia [Unknown]
  - Foetal exposure during pregnancy [Unknown]
  - Hyperlactacidaemia [Unknown]
  - Septic shock [Unknown]
  - Foetal hypokinesia [Unknown]
  - Premature baby [Unknown]
  - Metabolic acidosis [Unknown]
  - Pneumonia [Unknown]
  - Disseminated intravascular coagulation [Unknown]
  - Death [Fatal]
  - Rash [Unknown]
  - Neonatal asphyxia [Unknown]
  - Renal failure [Unknown]
  - Listeriosis [Unknown]
  - Low birth weight baby [Unknown]
